FAERS Safety Report 6481203-1 (Version None)
Quarter: 2009Q4

REPORT INFORMATION
  Report Type: 
  Country: None (occurrence: None)
  Receive Date: 20091208
  Receipt Date: 20090312
  Transmission Date: 20100525
  Serious: No
  Sender: FDA-Public Use
  Company Number: US-AMGEN-KDL338204

PATIENT
  Sex: Female
  Weight: 66.7 kg

DRUGS (2)
  1. ENBREL [Suspect]
     Indication: RHEUMATOID ARTHRITIS
     Route: 058
     Dates: start: 19990201, end: 20080501
  2. METHOTREXATE [Concomitant]
     Route: 048

REACTIONS (7)
  - COUGH [None]
  - DISEASE PROGRESSION [None]
  - IMPAIRED HEALING [None]
  - PHARYNGITIS STREPTOCOCCAL [None]
  - POSTOPERATIVE WOUND INFECTION [None]
  - RASH MACULAR [None]
  - RHEUMATOID ARTHRITIS [None]
